FAERS Safety Report 4463038-4 (Version None)
Quarter: 2004Q3

REPORT INFORMATION
  Report Type: 
  Country: None (occurrence: None)
  Receive Date: 20040928
  Receipt Date: 20040713
  Transmission Date: 20050211
  Serious: Yes (Hospitalization)
  Sender: FDA-Public Use
  Company Number: 2004-BP-05599AU

PATIENT
  Sex: Female

DRUGS (2)
  1. SPIRIVA [Suspect]
     Dosage: (18 MCG, NR) IH
     Route: 055
  2. TIMOLOL (TIMOLOL) (TRA) [Concomitant]

REACTIONS (3)
  - CARDIAC DISORDER [None]
  - RESPIRATORY DISORDER [None]
  - VISUAL ACUITY REDUCED [None]
